FAERS Safety Report 9418533 (Version 3)
Quarter: 2013Q3

REPORT INFORMATION
  Report Type: Spontaneous
  Country: US (occurrence: US)
  Receive Date: 20130725
  Receipt Date: 20130927
  Transmission Date: 20140515
  Serious: Yes (Hospitalization)
  Sender: FDA-Public Use
  Company Number: US-BIOGENIDEC-2013BI067948

PATIENT
  Age: 55 Year
  Sex: Female

DRUGS (2)
  1. TYSABRI [Suspect]
     Indication: MULTIPLE SCLEROSIS
     Route: 042
     Dates: start: 20070925, end: 20130412
  2. TYSABRI [Suspect]
     Indication: MULTIPLE SCLEROSIS
     Dates: end: 201305

REACTIONS (2)
  - Knee arthroplasty [Recovered/Resolved]
  - Arthralgia [Recovered/Resolved]
